FAERS Safety Report 16526240 (Version 2)
Quarter: 2019Q3

REPORT INFORMATION
  Report Type: Spontaneous
  Country: JP (occurrence: JP)
  Receive Date: 20190703
  Receipt Date: 20190807
  Transmission Date: 20191004
  Serious: Yes (Other)
  Sender: FDA-Public Use
  Company Number: JP-EISAI MEDICAL RESEARCH-EC-2019-058413

PATIENT
  Sex: Male
  Weight: 71 kg

DRUGS (5)
  1. LENVATINIB [Suspect]
     Active Substance: LENVATINIB
     Indication: HEPATOCELLULAR CARCINOMA
     Route: 048
     Dates: start: 20181214, end: 20181217
  2. LENVATINIB [Suspect]
     Active Substance: LENVATINIB
     Route: 048
     Dates: start: 20181225, end: 20190117
  3. LENVATINIB [Suspect]
     Active Substance: LENVATINIB
     Dates: start: 20190125
  4. LENVATINIB [Suspect]
     Active Substance: LENVATINIB
     Dosage: 8 MG AND 4 MG ON ALTERNATE DAYS
     Route: 048
     Dates: start: 20190118, end: 20190124
  5. LENVATINIB [Suspect]
     Active Substance: LENVATINIB
     Route: 048
     Dates: start: 20181218, end: 20181218

REACTIONS (1)
  - Drug-induced liver injury [Recovered/Resolved]

NARRATIVE: CASE EVENT DATE: 20181218
